FAERS Safety Report 5510762-8 (Version None)
Quarter: 2007Q4

REPORT INFORMATION
  Report Type: 
  Country: None (occurrence: None)
  Receive Date: 20071108
  Receipt Date: 20071102
  Transmission Date: 20080405
  Serious: Yes (Hospitalization)
  Sender: FDA-Public Use
  Company Number: B0492872A

PATIENT
  Age: 69 Year
  Sex: Female
  Weight: 64 kg

DRUGS (9)
  1. VALTREX [Suspect]
     Indication: HERPES ZOSTER
     Dosage: 1000MG THREE TIMES PER DAY
     Route: 048
     Dates: start: 20071009, end: 20071013
  2. LOXONIN [Suspect]
     Indication: HERPES ZOSTER
     Dosage: 60MG PER DAY
     Route: 048
     Dates: start: 20071009, end: 20071013
  3. SELBEX [Concomitant]
     Indication: HERPES ZOSTER
     Route: 048
     Dates: start: 20071009, end: 20071013
  4. AMLODIN [Concomitant]
     Indication: HYPERTENSION
     Dosage: 5MG PER DAY
     Route: 048
     Dates: start: 19960226
  5. METHYLCOBAL [Concomitant]
     Indication: SPINAL OSTEOARTHRITIS
     Dosage: 1000MCG PER DAY
     Route: 048
     Dates: start: 19960826, end: 20071017
  6. GLYBURIDE [Concomitant]
     Indication: DIABETES MELLITUS
     Dosage: 2.5MG PER DAY
     Route: 048
     Dates: start: 20030512, end: 20071015
  7. GLUCOBAY [Concomitant]
     Indication: DIABETES MELLITUS
     Dosage: 300MG PER DAY
     Route: 048
     Dates: start: 20050228, end: 20071013
  8. MELBIN [Concomitant]
     Dosage: 750MG PER DAY
     Route: 048
     Dates: start: 20040820, end: 20071012
  9. GENTACIN [Concomitant]
     Route: 061

REACTIONS (4)
  - ANURIA [None]
  - BLOOD CREATININE INCREASED [None]
  - MALAISE [None]
  - RENAL FAILURE ACUTE [None]
